FAERS Safety Report 6298050-6 (Version None)
Quarter: 2009Q3

REPORT INFORMATION
  Report Type: 
  Country: None (occurrence: None)
  Receive Date: 20090804
  Receipt Date: 20090804
  Transmission Date: 20100115
  Serious: Yes (Other)
  Sender: FDA-Public Use
  Company Number: None

PATIENT
  Age: 53 Year
  Sex: Female
  Weight: 99.7913 kg

DRUGS (1)
  1. ZICAM GLUCONIUM ZICAM COLD REMEDY [Suspect]
     Indication: NASOPHARYNGITIS
     Dosage: AS DIRECTED; AS NEEDED
     Dates: start: 20071001, end: 20090401

REACTIONS (2)
  - HYPOGEUSIA [None]
  - HYPOSMIA [None]
